FAERS Safety Report 12545179 (Version 1)
Quarter: 2016Q3

REPORT INFORMATION
  Report Type: Spontaneous
  Country: US (occurrence: US)
  Receive Date: 20160711
  Receipt Date: 20160711
  Transmission Date: 20161109
  Serious: No
  Sender: FDA-Public Use
  Company Number: US-DSJP-DSU-2016-112857

PATIENT
  Sex: Female
  Weight: 81.63 kg

DRUGS (1)
  1. BENICAR HCT [Suspect]
     Active Substance: HYDROCHLOROTHIAZIDE\OLMESARTAN MEDOXOMIL
     Indication: HYPERTENSION
     Dosage: 20/12.5 MG, QD
     Route: 048
     Dates: start: 1996

REACTIONS (4)
  - Type 2 diabetes mellitus [Not Recovered/Not Resolved]
  - Type 1 diabetes mellitus [Not Recovered/Not Resolved]
  - Depression [Not Recovered/Not Resolved]
  - Diabetic neuropathy [Not Recovered/Not Resolved]

NARRATIVE: CASE EVENT DATE: 2001
